FAERS Safety Report 5601885-3 (Version None)
Quarter: 2008Q1

REPORT INFORMATION
  Report Type: 
  Country: None (occurrence: None)
  Receive Date: 20080124
  Receipt Date: 20080116
  Transmission Date: 20080703
  Serious: Yes (Hospitalization)
  Sender: FDA-Public Use
  Company Number: JP-PFIZER INC-2008005900

PATIENT
  Age: 34 Year
  Sex: Female

DRUGS (12)
  1. NELFINAVIR [Suspect]
     Indication: HIV INFECTION
     Dosage: DAILY DOSE:2500MG-FREQ:INTERVAL: EVERYDAY
     Route: 048
     Dates: start: 20041029, end: 20050928
  2. NELFINAVIR [Suspect]
     Dosage: DAILY DOSE:2500MG-FREQ:INTERVAL: EVERYDAY
     Route: 048
  3. RETROVIR [Suspect]
     Indication: HIV INFECTION
     Dosage: DAILY DOSE:400MG-FREQ:INTERVAL: EVERYDAY
     Route: 048
     Dates: start: 20041029, end: 20050928
  4. RETROVIR [Suspect]
     Dates: start: 20050301, end: 20050301
  5. RETROVIR [Suspect]
     Dosage: DAILY DOSE:400MG-FREQ:INTERVAL: EVERYDAY
     Route: 048
  6. EPIVIR [Suspect]
     Indication: HIV INFECTION
     Route: 048
     Dates: start: 20041029, end: 20050228
  7. EPIVIR [Suspect]
     Route: 048
  8. FERROUS FUMARATE [Concomitant]
     Dates: start: 20041029, end: 20050228
  9. LOPERAMIDE HYDROCHLORIDE [Concomitant]
     Dates: start: 20041029, end: 20041104
  10. SULTAMICILLIN TOSILATE [Concomitant]
     Dates: start: 20041118, end: 20050120
  11. SERRAPEPTASE [Concomitant]
     Dates: start: 20041118, end: 20050120
  12. DEXTROMETHORPHAN HYDROBROMIDE [Concomitant]
     Dates: start: 20041118, end: 20050120

REACTIONS (1)
  - THREATENED LABOUR [None]
